FAERS Safety Report 25570637 (Version 1)
Quarter: 2025Q3

REPORT INFORMATION
  Report Type: Spontaneous
  Country: EU (occurrence: EU)
  Receive Date: 20250717
  Receipt Date: 20250717
  Transmission Date: 20251020
  Serious: Yes (Other)
  Sender: AUROBINDO
  Company Number: EU-KERNPHARMA-202501921

PATIENT
  Age: 25 Year

DRUGS (1)
  1. ACETYLCYSTEINE [Suspect]
     Active Substance: ACETYLCYSTEINE
     Indication: Hepatitis A
     Route: 065

REACTIONS (1)
  - Hyperbilirubinaemia [Recovering/Resolving]
